FAERS Safety Report 7714547-3 (Version None)
Quarter: 2011Q3

REPORT INFORMATION
  Report Type: 
  Country: None (occurrence: None)
  Receive Date: 20110804
  Receipt Date: 20110525
  Transmission Date: 20111222
  Serious: No
  Sender: FDA-Public Use
  Company Number: 2011-07284

PATIENT
  Age: 78 Year
  Sex: Male
  Weight: 81.6 kg

DRUGS (2)
  1. RAPAFLO [Suspect]
     Indication: BENIGN PROSTATIC HYPERPLASIA
     Dosage: 8 MG, DAILY, ORAL
     Route: 048
     Dates: start: 20110525
  2. RAPAFLO [Suspect]
     Indication: URINE OUTPUT DECREASED
     Dosage: 4 MG, DAILY, ORAL
     Route: 048
     Dates: end: 20110524

REACTIONS (5)
  - DRUG INEFFECTIVE [None]
  - FEELING JITTERY [None]
  - PHARYNGEAL HYPOAESTHESIA [None]
  - FEELING ABNORMAL [None]
  - NERVOUSNESS [None]
